FAERS Safety Report 4685404-4 (Version None)
Quarter: 2005Q2

REPORT INFORMATION
  Report Type: 
  Country: None (occurrence: None)
  Receive Date: 20050603
  Receipt Date: 20050520
  Transmission Date: 20051028
  Serious: Yes (Other)
  Sender: FDA-Public Use
  Company Number: A-CH2005-09775

PATIENT
  Age: 46 Year
  Sex: Female

DRUGS (11)
  1. TRACLEER [Suspect]
     Indication: PULMONARY HYPERTENSION
     Dosage: 125 MG, BID, ORAL
     Route: 048
     Dates: start: 20041101
  2. SANDOSTATIN [Suspect]
  3. CYCLOSPORINE [Concomitant]
  4. ERYTHROMYCIN (ERYTHROMYCIN) [Concomitant]
  5. FONZYLANE (BUFLOMEDIL HYDROCHLORIDE) [Concomitant]
  6. PANTOPRAZOLE SODIUM [Concomitant]
  7. LEVOTHYROXINE SODIUM [Concomitant]
  8. DIFFU K (POTASSIUM GHLORIDE) [Concomitant]
  9. GAVISCON [Concomitant]
  10. MOVICOL (POTASSIUM CHLORIDE, SODIUM BICARBONATE, MACROGOL, SODIUM CHLO [Concomitant]
  11. DEBRIDAT ^JOUVEINAL^ (TRIMEBUTINE MALEATE) [Concomitant]

REACTIONS (6)
  - ARTHRALGIA [None]
  - DISEASE RECURRENCE [None]
  - PAIN [None]
  - PYREXIA [None]
  - SUBCUTANEOUS NODULE [None]
  - VASCULITIS [None]
